FAERS Safety Report 7114042-9 (Version None)
Quarter: 2010Q4

REPORT INFORMATION
  Report Type: 
  Country: None (occurrence: None)
  Receive Date: 20101119
  Receipt Date: 20101110
  Transmission Date: 20110411
  Serious: Yes (Hospitalization)
  Sender: FDA-Public Use
  Company Number: Z0006488A

PATIENT

DRUGS (2)
  1. PAZOPANIB [Suspect]
     Indication: INFLAMMATORY CARCINOMA OF THE BREAST
     Dosage: 400MG PER DAY
     Route: 048
     Dates: start: 20100928
  2. LAPATINIB [Suspect]
     Indication: INFLAMMATORY CARCINOMA OF THE BREAST
     Dosage: 1000MG PER DAY
     Route: 048
     Dates: start: 20100928

REACTIONS (4)
  - DYSPNOEA [None]
  - FATIGUE [None]
  - HYPOXIA [None]
  - PANCREATITIS [None]
